FAERS Safety Report 9292931 (Version 2)
Quarter: 2013Q2

REPORT INFORMATION
  Report Type: Spontaneous
  Country: US (occurrence: US)
  Receive Date: 20130516
  Receipt Date: 20130603
  Transmission Date: 20140414
  Serious: No
  Sender: FDA-Public Use
  Company Number: US-PFIZER INC-2013146710

PATIENT
  Age: 65 Year
  Sex: Female
  Weight: 46.7 kg

DRUGS (4)
  1. ESTRING [Suspect]
     Indication: VULVOVAGINAL DRYNESS
     Dosage: UNK
     Route: 067
     Dates: start: 2011
  2. ESTRING [Suspect]
     Dosage: 1 VAG Q 3 MONTHS
     Route: 067
     Dates: start: 20120125
  3. SYNTHROID [Concomitant]
     Indication: THYROID DISORDER
     Dosage: 8.8 UG, 1X/DAY
  4. SYNTHROID [Concomitant]
     Dosage: 88 UG, UNK

REACTIONS (1)
  - Fungal infection [Recovering/Resolving]
